FAERS Safety Report 8360287-X (Version None)
Quarter: 2012Q2

REPORT INFORMATION
  Report Type: 
  Country: None (occurrence: None)
  Receive Date: 20120515
  Receipt Date: 20120510
  Transmission Date: 20120825
  Serious: Yes (Hospitalization)
  Sender: FDA-Public Use
  Company Number: US-JNJFOC-20120306863

PATIENT
  Sex: Female
  Weight: 83.92 kg

DRUGS (6)
  1. RISPERIDONE [Concomitant]
     Route: 048
     Dates: start: 20120301
  2. TOPAMAX [Suspect]
     Indication: COMPLEX REGIONAL PAIN SYNDROME
     Route: 048
  3. LAMICTAL [Concomitant]
     Route: 048
     Dates: start: 20120301
  4. RISPERIDONE [Concomitant]
     Route: 048
     Dates: start: 20120301
  5. WELLBUTRIN [Concomitant]
     Route: 048
     Dates: start: 20120301
  6. CONCERTA [Suspect]
     Indication: ATTENTION DEFICIT/HYPERACTIVITY DISORDER
     Route: 048
     Dates: start: 20110101

REACTIONS (11)
  - MANIA [None]
  - DRUG WITHDRAWAL SYNDROME [None]
  - DISTURBANCE IN ATTENTION [None]
  - SEDATION [None]
  - MOOD SWINGS [None]
  - INSOMNIA [None]
  - MEMORY IMPAIRMENT [None]
  - WITHDRAWAL SYNDROME [None]
  - DRUG DOSE OMISSION [None]
  - IRRITABILITY [None]
  - SUICIDE ATTEMPT [None]
